FAERS Safety Report 19270327 (Version 1)
Quarter: 2021Q2

REPORT INFORMATION
  Report Type: Report from Study
  Country: US (occurrence: US)
  Receive Date: 20210518
  Receipt Date: 20210518
  Transmission Date: 20210717
  Serious: Yes (Other)
  Sender: FDA-Public Use
  Company Number: US-MYLANLABS-2021M1028522

PATIENT
  Age: 20 Year
  Sex: Female

DRUGS (2)
  1. AMNESTEEM [Suspect]
     Active Substance: ISOTRETINOIN
     Indication: ACNE
     Dosage: 40 MG CAPSULE AND A 20 MG CAPSULE TO MAKE UP 60 MG DAILY
     Route: 065
     Dates: start: 20210127, end: 20210506
  2. AMNESTEEM [Suspect]
     Active Substance: ISOTRETINOIN
     Indication: ACNE
     Dosage: 40 MG CAPSULE AND A 20 MG CAPSULE TO MAKE UP 60 MG DAILY
     Route: 065
     Dates: start: 20210127, end: 20210506

REACTIONS (2)
  - Maternal exposure during pregnancy [Unknown]
  - Malaise [Unknown]

NARRATIVE: CASE EVENT DATE: 202105
